FAERS Safety Report 12792761 (Version 2)
Quarter: 2016Q3

REPORT INFORMATION
  Report Type: Spontaneous
  Country: US (occurrence: US)
  Receive Date: 20160929
  Receipt Date: 20160930
  Transmission Date: 20161109
  Serious: Yes (Death, Other)
  Sender: FDA-Public Use
  Company Number: US-ABBVIE-16K-163-1740809-00

PATIENT
  Sex: Female

DRUGS (1)
  1. HUMIRA [Suspect]
     Active Substance: ADALIMUMAB
     Indication: RHEUMATOID ARTHRITIS
     Route: 058
     Dates: start: 201303

REACTIONS (3)
  - Soft tissue sarcoma [Unknown]
  - Death [Fatal]
  - Rheumatoid arthritis [Unknown]

NARRATIVE: CASE EVENT DATE: 2015
